FAERS Safety Report 8395564-X (Version None)
Quarter: 2012Q2

REPORT INFORMATION
  Report Type: 
  Country: None (occurrence: None)
  Receive Date: 20120530
  Receipt Date: 20110825
  Transmission Date: 20120825
  Serious: No
  Sender: FDA-Public Use
  Company Number: US-GLAXOSMITHKLINE-A0942290A

PATIENT
  Age: 60 Year
  Sex: Male

DRUGS (7)
  1. SALINE [Concomitant]
     Route: 045
  2. FLUOXETINE [Concomitant]
  3. NASONEX [Concomitant]
  4. VENTOLIN [Suspect]
     Indication: DYSPNOEA
     Dosage: 2PUFF TWICE PER DAY
     Route: 055
     Dates: start: 20110818, end: 20110823
  5. BUSPIRONE HCL [Concomitant]
  6. LORATADINE [Concomitant]
  7. ASPIRIN [Concomitant]

REACTIONS (3)
  - PRODUCTIVE COUGH [None]
  - HAEMOPTYSIS [None]
  - COUGH [None]
